FAERS Safety Report 23153265 (Version 1)
Quarter: 2023Q4

REPORT INFORMATION
  Report Type: Spontaneous
  Country: US (occurrence: US)
  Receive Date: 20231107
  Receipt Date: 20231107
  Transmission Date: 20240109
  Serious: No
  Sender: FDA-Public Use
  Company Number: US-ELI_LILLY_AND_COMPANY-US202311003247

PATIENT

DRUGS (1)
  1. MOUNJARO [Suspect]
     Active Substance: TIRZEPATIDE
     Indication: Product use in unapproved indication
     Dosage: UNK UNK, UNKNOWN
     Route: 065

REACTIONS (2)
  - Blood thyroid stimulating hormone increased [Not Recovered/Not Resolved]
  - Off label use [Not Recovered/Not Resolved]
